FAERS Safety Report 8308544-7 (Version None)
Quarter: 2012Q2

REPORT INFORMATION
  Report Type: 
  Country: None (occurrence: None)
  Receive Date: 20120424
  Receipt Date: 20120416
  Transmission Date: 20120825
  Serious: Yes (Other)
  Sender: FDA-Public Use
  Company Number: US-JNJFOC-20110908804

PATIENT

DRUGS (1)
  1. LEVAQUIN [Suspect]
     Indication: INFECTION
     Route: 048
     Dates: start: 20090806, end: 20090815

REACTIONS (3)
  - JOINT INJURY [None]
  - TENDONITIS [None]
  - ROTATOR CUFF SYNDROME [None]
